FAERS Safety Report 9140141 (Version 1)
Quarter: 2013Q1

REPORT INFORMATION
  Report Type: Spontaneous
  Country: US (occurrence: US)
  Receive Date: 20130305
  Receipt Date: 20130305
  Transmission Date: 20140127
  Serious: Yes (Death)
  Sender: FDA-Public Use
  Company Number: US-TEVA-389307USA

PATIENT
  Sex: Male
  Weight: 84.44 kg

DRUGS (5)
  1. QVAR [Suspect]
     Indication: ASTHMA
     Dosage: 160 MICROGRAM DAILY; 2 PUFFS BID
     Route: 055
  2. PLAVIX [Concomitant]
     Route: 048
  3. ISOSORBIDE DINITRATE [Concomitant]
     Route: 048
  4. FELODIPINE [Concomitant]
     Route: 048
  5. GLIPIZIDE [Concomitant]
     Dosage: 20 MILLIGRAM DAILY;
     Route: 048

REACTIONS (1)
  - Myocardial infarction [Fatal]
